FAERS Safety Report 6766900-2 (Version None)
Quarter: 2010Q2

REPORT INFORMATION
  Report Type: 
  Country: None (occurrence: None)
  Receive Date: 20100611
  Receipt Date: 20100603
  Transmission Date: 20101027
  Serious: Yes (Hospitalization)
  Sender: FDA-Public Use
  Company Number: JP-ABBOTT-10P-087-0647302-00

PATIENT
  Sex: Female
  Weight: 42 kg

DRUGS (15)
  1. CLARITHROMYCIN [Suspect]
     Indication: BRONCHITIS
     Route: 048
     Dates: start: 20100409, end: 20100414
  2. DIOVAN [Concomitant]
     Indication: HYPERTENSION
     Route: 048
     Dates: start: 20080322
  3. ASPIRIN [Concomitant]
     Indication: ATRIAL FIBRILLATION
     Route: 048
  4. NEUQUINON [Concomitant]
     Indication: CARDIAC FAILURE
     Route: 048
     Dates: start: 20080322
  5. ADALAT [Concomitant]
     Indication: HYPERTENSION
     Route: 048
     Dates: start: 20100402
  6. RIZE [Concomitant]
     Indication: INSOMNIA
     Route: 048
     Dates: start: 20080322
  7. FRANDOL TAPE [Concomitant]
     Indication: CARDIAC FAILURE
     Route: 062
     Dates: start: 20080322
  8. PELEX [Concomitant]
     Indication: UPPER RESPIRATORY TRACT INFLAMMATION
     Route: 048
     Dates: start: 20100409, end: 20100414
  9. SOLON [Concomitant]
     Indication: GASTRITIS
     Route: 048
     Dates: start: 20100409, end: 20100414
  10. TALION [Concomitant]
     Indication: UPPER RESPIRATORY TRACT INFLAMMATION
     Route: 048
     Dates: start: 20100409, end: 20100414
  11. HOCHUEKKITO [Concomitant]
     Indication: UPPER RESPIRATORY TRACT INFLAMMATION
     Route: 048
     Dates: start: 20100414
  12. KASHIWADOL [Concomitant]
     Indication: UPPER RESPIRATORY TRACT INFLAMMATION
     Route: 042
     Dates: start: 20100414, end: 20100414
  13. MUCOSOL [Concomitant]
     Indication: UPPER RESPIRATORY TRACT INFLAMMATION
     Route: 048
     Dates: start: 20100402, end: 20100408
  14. RESPLEN [Concomitant]
     Indication: UPPER RESPIRATORY TRACT INFLAMMATION
     Route: 048
     Dates: start: 20100402, end: 20100408
  15. EMPYNASE [Concomitant]
     Indication: UPPER RESPIRATORY TRACT INFLAMMATION
     Route: 048
     Dates: start: 20100402, end: 20100408

REACTIONS (1)
  - COLITIS ISCHAEMIC [None]
